FAERS Safety Report 4818424-7 (Version None)
Quarter: 2005Q4

REPORT INFORMATION
  Report Type: 
  Country: None (occurrence: None)
  Receive Date: 20051027
  Receipt Date: 20051024
  Transmission Date: 20060501
  Serious: Yes (Other)
  Sender: FDA-Public Use
  Company Number: 200509467

PATIENT
  Age: 34 Year
  Sex: Female
  Weight: 79.3795 kg

DRUGS (3)
  1. RHOPHYLAC (ANTI-D IMMUNOGLOBULIN) (ZLB BEHRING) [Suspect]
     Indication: PROPHYLAXIS
     Dosage: 300 UG ONCE IV
     Route: 042
     Dates: start: 20050920, end: 20050920
  2. RHOPHYLAC (ANTI-D IMMUNOGLOBULIN) (ZLB BEHRING) [Suspect]
     Indication: RHESUS INCOMPATIBILITY
     Dosage: 300 UG ONCE IV
     Route: 042
     Dates: start: 20050920, end: 20050920
  3. RHOGAM [Concomitant]

REACTIONS (6)
  - FOETAL-MATERNAL HAEMORRHAGE [None]
  - HEART RATE INCREASED [None]
  - MOVEMENT DISORDER [None]
  - POSTPARTUM DISORDER [None]
  - SKIN DISCOLOURATION [None]
  - TREMOR [None]
